FAERS Safety Report 6568257-9 (Version None)
Quarter: 2010Q1

REPORT INFORMATION
  Report Type: 
  Country: None (occurrence: None)
  Receive Date: 20100203
  Receipt Date: 20100122
  Transmission Date: 20100710
  Serious: Yes (Hospitalization)
  Sender: FDA-Public Use
  Company Number: IT-SANOFI-AVENTIS-200915234EU

PATIENT
  Age: 74 Year
  Sex: Female

DRUGS (8)
  1. ACETYLSALICYLIC ACID/ALUMINIUM HYDROXIDE/MAGNESIUM HYDROXIDE [Suspect]
     Route: 048
     Dates: start: 20090803
  2. PLAVIX [Suspect]
     Route: 048
     Dates: start: 20090803
  3. TAREG [Suspect]
     Route: 048
     Dates: start: 20090803
  4. POTASSIUM CANRENOATE [Suspect]
     Route: 048
     Dates: start: 20090803
  5. KANRENOL [Suspect]
     Route: 048
     Dates: start: 20090803
  6. PANTORC [Suspect]
     Indication: GASTRITIS
     Route: 048
     Dates: start: 20090803
  7. METOPROLOLO [Suspect]
     Route: 048
     Dates: start: 20090803
  8. ATORVASTATIN [Suspect]
     Route: 048
     Dates: start: 20090803

REACTIONS (1)
  - DERMATITIS EXFOLIATIVE [None]
